FAERS Safety Report 6473146-4 (Version None)
Quarter: 2009Q4

REPORT INFORMATION
  Report Type: 
  Country: None (occurrence: None)
  Receive Date: 20091204
  Receipt Date: 20080821
  Transmission Date: 20100525
  Serious: Yes (Death, Hospitalization)
  Sender: FDA-Public Use
  Company Number: JP-ELI_LILLY_AND_COMPANY-JP200805004145

PATIENT
  Sex: Male
  Weight: 60 kg

DRUGS (15)
  1. PEMETREXED [Suspect]
     Indication: PLEURAL MESOTHELIOMA MALIGNANT
     Dosage: 847 MG, OTHER
     Route: 042
     Dates: start: 20080424, end: 20080424
  2. CISPLATIN [Suspect]
     Indication: PLEURAL MESOTHELIOMA MALIGNANT
     Dosage: 127 MG, OTHER
     Route: 042
     Dates: start: 20080424, end: 20080424
  3. AMARYL [Concomitant]
     Indication: DIABETES MELLITUS
     Dosage: 2 MG, DAILY (1/D)
     Route: 048
     Dates: end: 20080501
  4. BASEN [Concomitant]
     Indication: DIABETES MELLITUS
     Dosage: 0.6 MG, DAILY (1/D)
     Route: 048
     Dates: end: 20080501
  5. CELTECT [Concomitant]
     Dosage: 60 MG, DAILY (1/D)
     Route: 048
     Dates: end: 20080501
  6. BISOLVON [Concomitant]
     Indication: EMPHYSEMA
     Dosage: 12 MG, DAILY (1/D)
     Route: 048
     Dates: end: 20080501
  7. OXYCONTIN [Concomitant]
     Indication: CANCER PAIN
     Dosage: 20 MG, EACH EVENING
     Route: 048
     Dates: start: 20080422, end: 20080427
  8. MAGNESIUM OXIDE [Concomitant]
     Indication: PROPHYLAXIS
     Dosage: 1 G, DAILY (1/D)
     Route: 048
     Dates: start: 20080422, end: 20080501
  9. NOVAMIN [Concomitant]
     Dosage: 15 MG, DAILY (1/D)
     Route: 048
     Dates: start: 20080422, end: 20080501
  10. PRIMPERAN                               /SCH/ [Concomitant]
     Dosage: 15 MG, DAILY (1/D)
     Route: 048
     Dates: start: 20080424, end: 20080428
  11. DECADRON                                /CAN/ [Concomitant]
     Dosage: 8 MG, DAILY (1/D)
     Route: 042
     Dates: start: 20080424, end: 20080425
  12. DECADRON                                /CAN/ [Concomitant]
     Dosage: 8 MG, DAILY (1/D)
     Route: 048
     Dates: start: 20080426, end: 20080428
  13. NASEA [Concomitant]
     Dosage: 0.3 MG, DAILY (1/D)
     Route: 042
     Dates: start: 20080424, end: 20080425
  14. PANVITAN [Concomitant]
     Dosage: 1 G, DAILY (1/D)
     Route: 048
     Dates: start: 20080417, end: 20080512
  15. METHYCOBAL [Concomitant]
     Dosage: 1 MG, OTHER
     Route: 030
     Dates: start: 20080417, end: 20080417

REACTIONS (6)
  - BLOOD LACTATE DEHYDROGENASE INCREASED [None]
  - FEBRILE NEUTROPENIA [None]
  - INTERSTITIAL LUNG DISEASE [None]
  - LIVER DISORDER [None]
  - PLATELET COUNT DECREASED [None]
  - RENAL IMPAIRMENT [None]
